FAERS Safety Report 9723343 (Version 1)
Quarter: 2013Q4

REPORT INFORMATION
  Report Type: Spontaneous
  Country: US (occurrence: US)
  Receive Date: 20131202
  Receipt Date: 20131202
  Transmission Date: 20140711
  Serious: No
  Sender: FDA-Public Use
  Company Number: US-GLAXOSMITHKLINE-A1015130A

PATIENT
  Age: 73 Year
  Sex: Female

DRUGS (3)
  1. FLONASE [Suspect]
     Indication: RHINITIS ALLERGIC
     Route: 045
  2. DIOVAN [Concomitant]
  3. TOPROL [Concomitant]

REACTIONS (3)
  - Nasal discomfort [Not Recovered/Not Resolved]
  - Epistaxis [Unknown]
  - Product quality issue [Unknown]
